FAERS Safety Report 23460081 (Version 1)
Quarter: 2024Q1

REPORT INFORMATION
  Report Type: Spontaneous
  Country: US (occurrence: US)
  Receive Date: 20240131
  Receipt Date: 20240131
  Transmission Date: 20240410
  Serious: Yes (Other)
  Sender: FDA-Public Use
  Company Number: US-STRIDES ARCOLAB LIMITED-2023SP002503

PATIENT
  Age: 8 Decade
  Sex: Male

DRUGS (3)
  1. CABERGOLINE [Suspect]
     Active Substance: CABERGOLINE
     Indication: Prolactin-producing pituitary tumour
     Dosage: 0.5 MILLIGRAM (TWO TIMES PER WEEK)
     Route: 065
     Dates: start: 2005
  2. CABERGOLINE [Suspect]
     Active Substance: CABERGOLINE
     Dosage: 0.25 MILLIGRAM (TWO TIMES PER WEEK)
     Route: 065
     Dates: end: 2022
  3. BROMOCRIPTINE [Concomitant]
     Active Substance: BROMOCRIPTINE
     Indication: Prolactin-producing pituitary tumour
     Dosage: UNK
     Route: 065
     Dates: start: 200005, end: 2005

REACTIONS (3)
  - Cardiac valve disease [Unknown]
  - Aortic valve disease [Unknown]
  - Mitral valve disease [Unknown]
